FAERS Safety Report 4281071-2 (Version None)
Quarter: 2004Q1

REPORT INFORMATION
  Report Type: 
  Country: None (occurrence: None)
  Receive Date: 20040112
  Receipt Date: 20031020
  Transmission Date: 20041129
  Serious: Yes (Other)
  Sender: FDA-Public Use
  Company Number: 345032

PATIENT
  Age: 41 Year
  Sex: Male
  Weight: 90.7 kg

DRUGS (5)
  1. FUZEON [Suspect]
     Indication: HIV INFECTION
     Dosage: 90 MG 2 PER DAY SUBCUTANEOUS
     Route: 058
     Dates: start: 20030801
  2. REYATAZ (ATAZANAVIR) [Concomitant]
  3. VIREAD [Concomitant]
  4. NORVIR [Concomitant]
  5. BIAXIN [Concomitant]

REACTIONS (8)
  - CELLULITIS [None]
  - INJECTION SITE INFECTION [None]
  - INJECTION SITE PAIN [None]
  - INJECTION SITE PRURITUS [None]
  - INJECTION SITE REACTION [None]
  - INJECTION SITE SCAR [None]
  - LOWER RESPIRATORY TRACT INFECTION [None]
  - SKIN LESION [None]
